FAERS Safety Report 5909068-4 (Version None)
Quarter: 2008Q3

REPORT INFORMATION
  Report Type: 
  Country: None (occurrence: None)
  Receive Date: 20080929
  Receipt Date: 20080916
  Transmission Date: 20090109
  Serious: Yes (Hospitalization)
  Sender: FDA-Public Use
  Company Number: US024071

PATIENT
  Age: 77 Year
  Sex: Male

DRUGS (2)
  1. PROVIGIL [Suspect]
     Indication: SLEEP DISORDER
     Dosage: 1-2 TABLETS DAILY PRN ORAL
     Route: 048
     Dates: start: 20070101, end: 20080801
  2. ROZEREM [Concomitant]

REACTIONS (5)
  - ANAEMIA [None]
  - DEPRESSED LEVEL OF CONSCIOUSNESS [None]
  - FALL [None]
  - HUMERUS FRACTURE [None]
  - PNEUMONIA [None]
